FAERS Safety Report 8352430-3 (Version None)
Quarter: 2012Q2

REPORT INFORMATION
  Report Type: 
  Country: None (occurrence: None)
  Receive Date: 20120511
  Receipt Date: 20120504
  Transmission Date: 20120825
  Serious: Yes (Hospitalization)
  Sender: FDA-Public Use
  Company Number: PHFR2012GB000597

PATIENT
  Sex: Female

DRUGS (2)
  1. CLOZARIL [Suspect]
     Dosage: 50MG MANE 150MG NOCTE
     Route: 048
  2. CLOZARIL [Suspect]
     Indication: SCHIZOPHRENIA
     Dosage: 50MG MANE 150MG NOCTE
     Route: 048
     Dates: start: 20050701, end: 20120105

REACTIONS (2)
  - LOWER RESPIRATORY TRACT INFECTION [None]
  - BORDERLINE PERSONALITY DISORDER [None]
